FAERS Safety Report 6955252-0 (Version None)
Quarter: 2010Q3

REPORT INFORMATION
  Report Type: 
  Country: None (occurrence: None)
  Receive Date: 20100830
  Receipt Date: 20100819
  Transmission Date: 20110219
  Serious: Yes (Hospitalization)
  Sender: FDA-Public Use
  Company Number: PE-ASTRAZENECA-2010SE39436

PATIENT
  Age: 88 Year
  Sex: Male

DRUGS (1)
  1. SYMBICORT [Suspect]
     Indication: ASTHMA
     Dosage: 160/4.5
     Route: 055
     Dates: start: 20100204

REACTIONS (3)
  - ARRHYTHMIA [None]
  - DIZZINESS [None]
  - LOSS OF CONSCIOUSNESS [None]
